FAERS Safety Report 14907477 (Version 2)
Quarter: 2018Q2

REPORT INFORMATION
  Report Type: Spontaneous
  Country: US (occurrence: US)
  Receive Date: 20180517
  Receipt Date: 20180525
  Transmission Date: 20180711
  Serious: Yes (Hospitalization)
  Sender: FDA-Public Use
  Company Number: US-AUROBINDO-AUR-APL-2018-024954

PATIENT
  Age: 61 Year
  Sex: Female

DRUGS (3)
  1. TRAMADOL 50MG [Suspect]
     Active Substance: TRAMADOL
     Indication: HEADACHE
  2. HALOPERIDOL. [Concomitant]
     Active Substance: HALOPERIDOL
     Indication: AGITATION
     Dosage: UNK
     Route: 065
  3. TRAMADOL 50MG [Suspect]
     Active Substance: TRAMADOL
     Indication: FALL
     Dosage: 50 MILLIGRAM
     Route: 065

REACTIONS (9)
  - Aggression [Recovered/Resolved]
  - Euphoric mood [Recovered/Resolved]
  - Energy increased [Recovered/Resolved]
  - Nightmare [Recovered/Resolved]
  - Inappropriate affect [Recovered/Resolved]
  - Suicidal ideation [Recovered/Resolved]
  - Mania [Recovered/Resolved]
  - Speech disorder [Recovered/Resolved]
  - Sleep disorder [Recovered/Resolved]
